FAERS Safety Report 17516363 (Version 1)
Quarter: 2020Q1

REPORT INFORMATION
  Report Type: Report from Study
  Country: None (occurrence: US)
  Receive Date: 20200309
  Receipt Date: 20200309
  Transmission Date: 20200409
  Serious: Yes (Other)
  Sender: FDA-Public Use
  Company Number: US-ABBVIE-20K-163-3306538-00

PATIENT
  Age: 31 Year
  Sex: Female

DRUGS (1)
  1. ORILISSA [Suspect]
     Active Substance: ELAGOLIX SODIUM
     Indication: PRODUCT USED FOR UNKNOWN INDICATION
     Route: 048

REACTIONS (4)
  - Pain [Not Recovered/Not Resolved]
  - Amenorrhoea [Recovered/Resolved]
  - Menstrual disorder [Recovered/Resolved]
  - Surgery [Recovering/Resolving]

NARRATIVE: CASE EVENT DATE: 20200224
